FAERS Safety Report 11849729 (Version 1)
Quarter: 2015Q4

REPORT INFORMATION
  Report Type: Report from Study
  Country: CH (occurrence: CH)
  Receive Date: 20151218
  Receipt Date: 20151218
  Transmission Date: 20160305
  Serious: Yes (Other)
  Sender: FDA-Public Use
  Company Number: CH-ACTELION-A-CH2015-128602

PATIENT
  Age: 9 Year
  Sex: Female
  Weight: 31.5 kg

DRUGS (3)
  1. ZAVESCA [Suspect]
     Active Substance: MIGLUSTAT
     Dosage: 150 MG, QD
     Route: 048
     Dates: start: 20140628
  2. ZAVESCA [Suspect]
     Active Substance: MIGLUSTAT
     Dosage: 300 MG, QD
     Route: 048
  3. ZAVESCA [Suspect]
     Active Substance: MIGLUSTAT
     Indication: NIEMANN-PICK DISEASE
     Dosage: 200 MG, TID
     Route: 048
     Dates: start: 20140228, end: 20140504

REACTIONS (5)
  - Disorientation [Unknown]
  - Abnormal behaviour [Unknown]
  - Thrombocytopenia [Unknown]
  - Memory impairment [Recovered/Resolved]
  - Confusional state [Recovered/Resolved]

NARRATIVE: CASE EVENT DATE: 20140502
